FAERS Safety Report 7197886-7 (Version None)
Quarter: 2010Q4

REPORT INFORMATION
  Report Type: 
  Country: None (occurrence: None)
  Receive Date: 20101227
  Receipt Date: 20101223
  Transmission Date: 20110411
  Serious: Yes (Life-Threatening, Hospitalization)
  Sender: FDA-Public Use
  Company Number: DE-ROCHE-735341

PATIENT
  Sex: Female
  Weight: 62 kg

DRUGS (9)
  1. CAPECITABINE [Suspect]
     Dosage: CUMULATIVE DOSE: 25500 MG.  825 MG/M2 2X/DAY FROM DAY 1 TO 14
     Route: 048
     Dates: start: 20101008
  2. DOCETAXEL [Suspect]
     Dosage: 75 MG/M2 ON DAY 1
     Route: 042
     Dates: start: 20101008
  3. DEXAMETHASONE [Concomitant]
     Dosage: ROUTE: ORAL
     Route: 042
     Dates: start: 20101007, end: 20101010
  4. DEXAMETHASONE [Concomitant]
     Dosage: ROUTE: INTRAVENOUS
     Route: 042
     Dates: start: 20101008
  5. NAVOBAN [Concomitant]
     Dosage: ROUTE:  INTRAVENOUS
     Route: 048
     Dates: start: 20101008
  6. NAVOBAN [Concomitant]
     Dosage: ONE DOSE IN THE MORNING, ROUTE: ORAL, INDICATION : ANTIEMESIS
     Route: 048
     Dates: start: 20101009, end: 20101011
  7. EMEND [Concomitant]
     Dosage: ONE DOSE IN THE MORNING. INDICATION: ANTIEMESIS
     Dates: start: 20101008, end: 20101008
  8. EMEND [Concomitant]
     Dosage: ONE DOSE IN THE MORNING. INDICATION: ANTIEMESIS
     Dates: start: 20101009, end: 20101010
  9. TAVOR [Concomitant]
     Dosage: 1 MG ONE DOSE IN THE MORNING, INDICATION: TRANSQUILATION
     Route: 048
     Dates: start: 20101007

REACTIONS (2)
  - DIARRHOEA [None]
  - FEBRILE NEUTROPENIA [None]
